FAERS Safety Report 21110557 (Version 1)
Quarter: 2022Q3

REPORT INFORMATION
  Report Type: Report from Study
  Country: AU (occurrence: AU)
  Receive Date: 20220721
  Receipt Date: 20220721
  Transmission Date: 20221026
  Serious: Yes (Hospitalization)
  Sender: FDA-Public Use
  Company Number: AU-BEH-2022147578

PATIENT
  Age: 87 Year
  Sex: Female
  Weight: 85 kg

DRUGS (4)
  1. HIZENTRA [Suspect]
     Active Substance: HUMAN IMMUNOGLOBULIN G
     Indication: Primary immunodeficiency syndrome
     Dosage: 9 GRAM, QW
     Route: 058
  2. THYROXINE [Concomitant]
     Active Substance: LEVOTHYROXINE
  3. CANDESARTAN CILEXETIL\HYDROCHLOROTHIAZIDE [Concomitant]
     Active Substance: CANDESARTAN CILEXETIL\HYDROCHLOROTHIAZIDE
  4. MOBIC [Concomitant]
     Active Substance: MELOXICAM

REACTIONS (3)
  - Cardiac failure [Unknown]
  - Pulmonary oedema [Unknown]
  - Aortic aneurysm [Unknown]

NARRATIVE: CASE EVENT DATE: 20220101
